FAERS Safety Report 18666390 (Version 1)
Quarter: 2020Q4

REPORT INFORMATION
  Report Type: Report from Study
  Country: US (occurrence: US)
  Receive Date: 20201227
  Receipt Date: 20201227
  Transmission Date: 20210114
  Serious: No
  Sender: FDA-Public Use
  Company Number: NVSC2020US336738

PATIENT
  Sex: Male

DRUGS (1)
  1. ENTRESTO [Suspect]
     Active Substance: SACUBITRIL\VALSARTAN
     Indication: PRODUCT USED FOR UNKNOWN INDICATION
     Dosage: UNK UNK, BID
     Route: 048
     Dates: start: 202002

REACTIONS (8)
  - Wrong technique in product usage process [Unknown]
  - Fatigue [Unknown]
  - Ejection fraction abnormal [Unknown]
  - Dyspnoea [Recovering/Resolving]
  - Product dose omission issue [Unknown]
  - Taste disorder [Unknown]
  - Product prescribing error [Unknown]
  - Heart rate abnormal [Unknown]
